FAERS Safety Report 6625597-2 (Version None)
Quarter: 2010Q1

REPORT INFORMATION
  Report Type: 
  Country: None (occurrence: None)
  Receive Date: 20100310
  Receipt Date: 20100305
  Transmission Date: 20100710
  Serious: Yes (Death)
  Sender: FDA-Public Use
  Company Number: US-GILEAD-2010-0027513

PATIENT
  Sex: Male

DRUGS (15)
  1. LETAIRIS [Suspect]
     Indication: PULMONARY ARTERIAL HYPERTENSION
     Route: 048
     Dates: start: 20080418
  2. WARFARIN [Concomitant]
  3. FUROSEMIDE [Concomitant]
  4. ASPIRIN [Concomitant]
  5. LISINOPRIL [Concomitant]
  6. ZOCOR [Concomitant]
  7. PREDNISONE [Concomitant]
  8. ADVAIR DISKUS 100/50 [Concomitant]
  9. XANAX [Concomitant]
  10. POTASSIUM [Concomitant]
  11. PREDNISOLONE [Concomitant]
  12. XALATAN [Concomitant]
  13. LANTUS [Concomitant]
  14. TORSEMIDE [Concomitant]
  15. ALLOPURINOL [Concomitant]

REACTIONS (1)
  - DEATH [None]
